FAERS Safety Report 23157150 (Version 2)
Quarter: 2023Q4

REPORT INFORMATION
  Report Type: Report from Study
  Country: NL (occurrence: NL)
  Receive Date: 20231108
  Receipt Date: 20231116
  Transmission Date: 20240110
  Serious: Yes (Other)
  Sender: FDA-Public Use
  Company Number: NL-ABBVIE-5485818

PATIENT
  Sex: Female

DRUGS (5)
  1. CARBIDOPA\LEVODOPA [Suspect]
     Active Substance: CARBIDOPA\LEVODOPA
     Indication: Parkinson^s disease
     Dosage: END: 2.0 ML, CND: 4.9 ML/H?DURATION TEXT: REMAINS AT 24 HOURS
     Route: 050
     Dates: start: 20231102
  2. CARBIDOPA\LEVODOPA [Suspect]
     Active Substance: CARBIDOPA\LEVODOPA
     Dosage: MD: 7.5 ML, CD: 6.4 ML/H, ED: 4.0 ML; ND: 0.0 ML, END: 2.0 ML, CND: 4.7 ML/H?DURATION TEXT: REMAI...
     Route: 050
     Dates: start: 20230626, end: 20230817
  3. CARBIDOPA\LEVODOPA [Suspect]
     Active Substance: CARBIDOPA\LEVODOPA
     Dosage: ND: 0.0 ML, END: 2.0 ML, CND: 4.9 ML/H?DURATION TEXT: REMAINS AT 24 HOURS
     Route: 050
     Dates: start: 20230926, end: 20231102
  4. CARBIDOPA\LEVODOPA [Suspect]
     Active Substance: CARBIDOPA\LEVODOPA
     Route: 050
     Dates: start: 20191014
  5. CARBIDOPA\LEVODOPA [Suspect]
     Active Substance: CARBIDOPA\LEVODOPA
     Dosage: MD: 7.5 ML, CD: 6.5 ML/H, ED: 4.0 ML; ND: 0.0 ML, END: 2.0 ML, CND: 4.7 ML/H?DURATION TEXT: REMAI...
     Route: 050
     Dates: start: 20230817, end: 20230926

REACTIONS (2)
  - Cardiac failure [Not Recovered/Not Resolved]
  - Cardiac disorder [Not Recovered/Not Resolved]
